FAERS Safety Report 8193086-2 (Version None)
Quarter: 2012Q1

REPORT INFORMATION
  Report Type: 
  Country: None (occurrence: None)
  Receive Date: 20120308
  Receipt Date: 20120308
  Transmission Date: 20120608
  Serious: Yes (Hospitalization)
  Sender: FDA-Public Use
  Company Number: None

PATIENT
  Age: 5 Year
  Sex: Female
  Weight: 19.2 kg

DRUGS (5)
  1. NAPROXEN [Concomitant]
  2. ZANTAC [Concomitant]
  3. RILONACEPT [Suspect]
     Indication: JUVENILE ARTHRITIS
     Dosage: 38.72 MG
     Dates: start: 20090826, end: 20100505
  4. INDOMETHACIN [Concomitant]
  5. ORAPRED [Concomitant]

REACTIONS (22)
  - RASH [None]
  - AVERSION [None]
  - HYPERTENSION [None]
  - PYREXIA [None]
  - INFLAMMATION [None]
  - INTERSTITIAL LUNG DISEASE [None]
  - HIRSUTISM [None]
  - PULMONARY VENO-OCCLUSIVE DISEASE [None]
  - PULMONARY ARTERY DILATATION [None]
  - DYSPNOEA EXERTIONAL [None]
  - CONDITION AGGRAVATED [None]
  - PULMONARY VALVE INCOMPETENCE [None]
  - RESPIRATORY TRACT INFECTION [None]
  - ARTHRALGIA [None]
  - WEIGHT BEARING DIFFICULTY [None]
  - ECHOCARDIOGRAM ABNORMAL [None]
  - PRODUCTIVE COUGH [None]
  - RIGHT VENTRICULAR HYPERTROPHY [None]
  - GINGIVAL HYPERPLASIA [None]
  - FATIGUE [None]
  - CHEST DISCOMFORT [None]
  - PERICARDIAL EFFUSION [None]
